FAERS Safety Report 14521978 (Version 2)
Quarter: 2018Q1

REPORT INFORMATION
  Report Type: Spontaneous
  Country: IT (occurrence: IT)
  Receive Date: 20180212
  Receipt Date: 20180216
  Transmission Date: 20180509
  Serious: Yes (Hospitalization)
  Sender: FDA-Public Use
  Company Number: IT-SHIRE-IT201803755

PATIENT

DRUGS (4)
  1. ONCASPAR [Suspect]
     Active Substance: PEGASPARGASE
     Indication: ACUTE LYMPHOCYTIC LEUKAEMIA RECURRENT
     Dosage: 2.5 KIU, TOTAL
     Route: 042
     Dates: start: 20180104
  2. VINCRISTINE [Concomitant]
     Active Substance: VINCRISTINE
     Indication: ACUTE LYMPHOCYTIC LEUKAEMIA RECURRENT
  3. ONCASPAR [Suspect]
     Active Substance: PEGASPARGASE
     Dosage: 750 IU/ML
     Route: 030
  4. ONCASPAR [Suspect]
     Active Substance: PEGASPARGASE
     Dosage: 5 ML GLASS VIAL- 1 VIAL
     Route: 042

REACTIONS (1)
  - Hypoalbuminaemia [Recovered/Resolved]

NARRATIVE: CASE EVENT DATE: 20180115
